FAERS Safety Report 23097720 (Version 2)
Quarter: 2023Q4

REPORT INFORMATION
  Report Type: Spontaneous
  Country: IE (occurrence: IE)
  Receive Date: 20231023
  Receipt Date: 20231129
  Transmission Date: 20240110
  Serious: Yes (Other)
  Sender: FDA-Public Use
  Company Number: None

PATIENT
  Age: 36 Year
  Sex: Female

DRUGS (1)
  1. METHOTREXATE [Suspect]
     Active Substance: METHOTREXATE
     Indication: Rheumatoid arthritis
     Route: 048
     Dates: start: 202208, end: 20230824

REACTIONS (2)
  - Exposure during pregnancy [Unknown]
  - Abortion spontaneous [Unknown]

NARRATIVE: CASE EVENT DATE: 20230101
